FAERS Safety Report 13602399 (Version 1)
Quarter: 2017Q2

REPORT INFORMATION
  Report Type: Spontaneous
  Country: ES (occurrence: ES)
  Receive Date: 20170601
  Receipt Date: 20170601
  Transmission Date: 20170830
  Serious: Yes (Other)
  Sender: FDA-Public Use
  Company Number: ES-PFIZER INC-2017237266

PATIENT
  Age: 81 Year
  Sex: Female

DRUGS (6)
  1. YANTIL [Interacting]
     Active Substance: TAPENTADOL HYDROCHLORIDE
     Dosage: 25 MG, 2X/DAY (EACH 12H)
     Route: 065
     Dates: start: 20170410
  2. LYRICA [Suspect]
     Active Substance: PREGABALIN
     Dosage: 75 MG, UNK
     Route: 048
     Dates: start: 2017
  3. ALPRAZOLAM MYLAN [Interacting]
     Active Substance: ALPRAZOLAM
     Dosage: 0.25 MG, 3X/DAY (EACH 8 HOURS)
     Route: 048
     Dates: start: 20160831
  4. ZYPREXA ZYDIS [Interacting]
     Active Substance: OLANZAPINE
     Dosage: 2.5 MG, 1X/DAY
     Route: 048
     Dates: start: 20160517
  5. DEPRAX /00447702/ [Interacting]
     Active Substance: TRAZODONE HYDROCHLORIDE
     Dosage: 100 MG, 1X/DAY
     Route: 048
     Dates: start: 2016
  6. PAROXETINE. [Interacting]
     Active Substance: PAROXETINE
     Dosage: 20 MG, UNK
     Route: 048
     Dates: start: 20090402

REACTIONS (2)
  - Cognitive disorder [Unknown]
  - Drug interaction [Unknown]

NARRATIVE: CASE EVENT DATE: 2017
